FAERS Safety Report 5655392-2 (Version None)
Quarter: 2008Q1

REPORT INFORMATION
  Report Type: 
  Country: None (occurrence: None)
  Receive Date: 20080307
  Receipt Date: 20080228
  Transmission Date: 20080703
  Serious: Yes (Other)
  Sender: FDA-Public Use
  Company Number: US-MERCK-0706USA00823

PATIENT
  Age: 50 Year
  Sex: Female

DRUGS (3)
  1. FOSAMAX [Suspect]
     Indication: RHEUMATOID ARTHRITIS
     Route: 048
     Dates: start: 20020426, end: 20050606
  2. METHOTREXATE [Concomitant]
     Route: 065
     Dates: start: 19970101
  3. HUMIRA [Concomitant]
     Route: 065
     Dates: end: 20060901

REACTIONS (7)
  - DEAFNESS [None]
  - GINGIVAL BLEEDING [None]
  - GINGIVAL DISORDER [None]
  - IMPAIRED HEALING [None]
  - OEDEMA MOUTH [None]
  - ORAL INFECTION [None]
  - RESORPTION BONE INCREASED [None]
